FAERS Safety Report 14950467 (Version 2)
Quarter: 2019Q2

REPORT INFORMATION
  Report Type: Report from Study
  Country: CA (occurrence: CA)
  Receive Date: 20180530
  Receipt Date: 20190405
  Transmission Date: 20190711
  Serious: Yes (Hospitalization, Other)
  Sender: FDA-Public Use
  Company Number: CA-BRISTOL-MYERS SQUIBB COMPANY-BMS-2018-008354

PATIENT
  Sex: Female

DRUGS (2)
  1. ABATACEPT [Suspect]
     Active Substance: ABATACEPT
     Indication: RHEUMATOID ARTHRITIS
     Dosage: 750 MG, UNK
     Route: 042
     Dates: start: 20180111
  2. ABATACEPT [Suspect]
     Active Substance: ABATACEPT
     Indication: RHEUMATOID ARTHRITIS
     Dosage: 125 MG, UNK
     Route: 058

REACTIONS (4)
  - Pelvic fracture [Recovering/Resolving]
  - Rheumatoid arthritis [Recovered/Resolved]
  - Hip fracture [Not Recovered/Not Resolved]
  - Arthropathy [Unknown]
